FAERS Safety Report 9648271 (Version 1)
Quarter: 2013Q4

REPORT INFORMATION
  Report Type: Spontaneous
  Country: US (occurrence: None)
  Receive Date: 20131024
  Receipt Date: 20131024
  Transmission Date: 20140711
  Serious: Yes (Other)
  Sender: FDA-Public Use
  Company Number: None

PATIENT
  Age: 49 Year
  Sex: Female
  Weight: 53.07 kg

DRUGS (4)
  1. SIMVASTATIN [Suspect]
     Indication: BLOOD CHOLESTEROL INCREASED
     Dosage: 1 TABLET
     Route: 048
     Dates: start: 20130921
  2. PAXIL [Concomitant]
  3. SIMVASTATIN [Concomitant]
  4. ADIVAN [Concomitant]

REACTIONS (2)
  - Panic attack [None]
  - Product substitution issue [None]
